FAERS Safety Report 15904303 (Version 2)
Quarter: 2019Q1

REPORT INFORMATION
  Report Type: Spontaneous
  Country: NL (occurrence: NL)
  Receive Date: 20190204
  Receipt Date: 20190213
  Transmission Date: 20190417
  Serious: Yes (Death, Other)
  Sender: FDA-Public Use
  Company Number: NL-TEVA-2019-NL-1007330

PATIENT
  Age: 81 Year
  Sex: Female

DRUGS (3)
  1. MORPHINE [Suspect]
     Active Substance: MORPHINE
     Indication: PALLIATIVE CARE
     Dosage: 40 MG ADMINISTERED VIA SUBCUTANEOUS PUMP, THE DOSE WAS CONVERTED FROM ORAL MORPHINE 120MG.
     Route: 058
  2. MORPHINE [Suspect]
     Active Substance: MORPHINE
     Dosage: LATER RE-INITIATED AT A REDUCED DOSAGE OF 10 MG/ 24 HOURS
     Route: 065
  3. MIDAZOLAM [Concomitant]
     Active Substance: MIDAZOLAM HYDROCHLORIDE
     Indication: PALLIATIVE CARE
     Dosage: ADMINISTERED VIA SUBCUTANEOUS PUMP
     Route: 058

REACTIONS (3)
  - Respiratory depression [Recovered/Resolved]
  - Overdose [Unknown]
  - Death [Fatal]
